FAERS Safety Report 7678616-9 (Version None)
Quarter: 2011Q3

REPORT INFORMATION
  Report Type: 
  Country: None (occurrence: None)
  Receive Date: 20110811
  Receipt Date: 20110727
  Transmission Date: 20111222
  Serious: Yes (Death, Hospitalization, Disabling)
  Sender: FDA-Public Use
  Company Number: JP-BAYER-2011-066187

PATIENT
  Age: 83 Year
  Sex: Male

DRUGS (4)
  1. PLAVIX [Suspect]
     Indication: ANGINA PECTORIS
     Dosage: UNK
     Route: 048
     Dates: start: 20080101
  2. OXYGEN [Concomitant]
     Indication: LOBAR PNEUMONIA
     Dosage: UNK
     Route: 055
     Dates: start: 20110324
  3. ANTIBIOTICS [Concomitant]
     Indication: LOBAR PNEUMONIA
     Dosage: UNK
     Route: 065
     Dates: start: 20110324
  4. ASPIRIN [Suspect]
     Indication: ANGINA PECTORIS
     Dosage: UNK
     Route: 048
     Dates: start: 20080101

REACTIONS (3)
  - SMALL INTESTINAL HAEMORRHAGE [None]
  - INTESTINAL OBSTRUCTION [None]
  - RESPIRATORY ARREST [None]
